FAERS Safety Report 17893398 (Version 1)
Quarter: 2020Q2

REPORT INFORMATION
  Report Type: Spontaneous
  Country: US (occurrence: US)
  Receive Date: 20200615
  Receipt Date: 20200615
  Transmission Date: 20200714
  Serious: No
  Sender: FDA-Public Use
  Company Number: US-MTPC-MTDA2020-0054646

PATIENT
  Sex: Female

DRUGS (1)
  1. RADICAVA [Suspect]
     Active Substance: EDARAVONE
     Indication: AMYOTROPHIC LATERAL SCLEROSIS
     Dosage: UNK
     Route: 065

REACTIONS (5)
  - Hypoaesthesia [Unknown]
  - Disease progression [Unknown]
  - Fatigue [Unknown]
  - Catheter site related reaction [Unknown]
  - Asthenia [Recovering/Resolving]
